FAERS Safety Report 4851784-X (Version None)
Quarter: 2005Q4

REPORT INFORMATION
  Report Type: 
  Country: None (occurrence: None)
  Receive Date: 20051209
  Receipt Date: 20051124
  Transmission Date: 20060501
  Serious: Yes (Hospitalization)
  Sender: FDA-Public Use
  Company Number: 12949

PATIENT
  Age: 65 Year
  Sex: Female

DRUGS (2)
  1. CARBOPLATIN [Suspect]
     Indication: LUNG NEOPLASM MALIGNANT
  2. DOCETAXEL [Suspect]
     Indication: LUNG NEOPLASM MALIGNANT

REACTIONS (10)
  - ALOPECIA [None]
  - BLOOD CULTURE POSITIVE [None]
  - BLOOD PRESSURE DECREASED [None]
  - CHILLS [None]
  - CULTURE URINE POSITIVE [None]
  - DIZZINESS [None]
  - ESCHERICHIA INFECTION [None]
  - INFECTION [None]
  - NAUSEA [None]
  - PANCYTOPENIA [None]
